FAERS Safety Report 17850643 (Version 29)
Quarter: 2025Q3

REPORT INFORMATION
  Report Type: Report from Study
  Country: US (occurrence: US)
  Receive Date: 20200602
  Receipt Date: 20250723
  Transmission Date: 20251020
  Serious: Yes (Other)
  Sender: TAKEDA
  Company Number: US-SHIRE-US202018066

PATIENT
  Age: 67 Year
  Sex: Female
  Weight: 68 kg

DRUGS (61)
  1. HUMAN IMMUNOGLOBULIN G [Suspect]
     Active Substance: HUMAN IMMUNOGLOBULIN G
     Indication: Hypogammaglobulinaemia
     Dosage: 30 GRAM, Q4WEEKS
     Dates: start: 20160325
  2. HUMAN IMMUNOGLOBULIN G [Suspect]
     Active Substance: HUMAN IMMUNOGLOBULIN G
     Indication: Primary immunodeficiency syndrome
     Dosage: 30 GRAM, Q4WEEKS
  3. HUMAN IMMUNOGLOBULIN G [Suspect]
     Active Substance: HUMAN IMMUNOGLOBULIN G
     Dosage: 30 GRAM, Q4WEEKS
  4. HUMAN IMMUNOGLOBULIN G [Suspect]
     Active Substance: HUMAN IMMUNOGLOBULIN G
     Dosage: 10 GRAM, Q4WEEKS
  5. HUMAN IMMUNOGLOBULIN G [Suspect]
     Active Substance: HUMAN IMMUNOGLOBULIN G
  6. CUVITRU [Suspect]
     Active Substance: HUMAN IMMUNOGLOBULIN G
     Indication: Immunodeficiency common variable
     Dosage: 10 GRAM, 1/WEEK
  7. XEMBIFY [Suspect]
     Active Substance: HUMAN IMMUNOGLOBULIN G
     Indication: Product used for unknown indication
  8. ACETAMINOPHEN [Concomitant]
     Active Substance: ACETAMINOPHEN
  9. DIPHENHYDRAMINE [Concomitant]
     Active Substance: DIPHENHYDRAMINE
  10. IBUPROFEN [Concomitant]
     Active Substance: IBUPROFEN
  11. SODIUM CHLORIDE [Concomitant]
     Active Substance: SODIUM CHLORIDE
  12. SODIUM CHLORIDE [Concomitant]
     Active Substance: SODIUM CHLORIDE
  13. EPINEPHRINE [Concomitant]
     Active Substance: EPINEPHRINE
  14. Lmx [Concomitant]
  15. AMLODIPINE BESYLATE [Concomitant]
     Active Substance: AMLODIPINE BESYLATE
  16. POLYETHYLENE GLYCOL [Concomitant]
     Active Substance: POLYETHYLENE GLYCOL
  17. VITAMIN D3 [Concomitant]
     Active Substance: CHOLECALCIFEROL
  18. FIORICET [Concomitant]
     Active Substance: ACETAMINOPHEN\BUTALBITAL\CAFFEINE
  19. LIVALO [Concomitant]
     Active Substance: PITAVASTATIN CALCIUM
  20. OXYGEN [Concomitant]
     Active Substance: OXYGEN
  21. TOBI [Concomitant]
     Active Substance: TOBRAMYCIN
  22. ZYRTEC [Concomitant]
     Active Substance: CETIRIZINE HYDROCHLORIDE
  23. LEVOTHYROXINE SODIUM [Concomitant]
     Active Substance: LEVOTHYROXINE SODIUM
  24. LIDOCAINE [Concomitant]
     Active Substance: LIDOCAINE
  25. ASPIRIN [Concomitant]
     Active Substance: ASPIRIN
  26. FLUTICASONE PROPIONATE [Concomitant]
     Active Substance: FLUTICASONE PROPIONATE
  27. ONDANSETRON HYDROCHLORIDE [Concomitant]
     Active Substance: ONDANSETRON HYDROCHLORIDE
  28. CLONAZEPAM [Concomitant]
     Active Substance: CLONAZEPAM
  29. MONTELUKAST SODIUM [Concomitant]
     Active Substance: MONTELUKAST SODIUM
  30. ESCITALOPRAM OXALATE [Concomitant]
     Active Substance: ESCITALOPRAM OXALATE
  31. MIGRANAL [Concomitant]
     Active Substance: DIHYDROERGOTAMINE MESYLATE
  32. FLECTOR [Concomitant]
     Active Substance: DICLOFENAC EPOLAMINE
  33. ALBUTEROL SULFATE [Concomitant]
     Active Substance: ALBUTEROL SULFATE
  34. GABAPENTIN [Concomitant]
     Active Substance: GABAPENTIN
  35. ATROVENT HFA [Concomitant]
     Active Substance: IPRATROPIUM BROMIDE
  36. ZENPEP [Concomitant]
     Active Substance: PANCRELIPASE AMYLASE\PANCRELIPASE LIPASE\PANCRELIPASE PROTEASE
  37. TOBRAMYCIN [Concomitant]
     Active Substance: TOBRAMYCIN
  38. METHOTREXATE [Concomitant]
     Active Substance: METHOTREXATE
  39. AMMONIUM LACTATE [Concomitant]
     Active Substance: AMMONIUM LACTATE
  40. AMLODIPINE [Concomitant]
     Active Substance: AMLODIPINE BESYLATE
  41. ESTRADIOL [Concomitant]
     Active Substance: ESTRADIOL
  42. FAMOTIDINE [Concomitant]
     Active Substance: FAMOTIDINE
  43. SPIRIVA [Concomitant]
     Active Substance: TIOTROPIUM BROMIDE MONOHYDRATE
  44. PANTOPRAZOLE [Concomitant]
     Active Substance: PANTOPRAZOLE
  45. SYMBICORT [Concomitant]
     Active Substance: BUDESONIDE\FORMOTEROL FUMARATE DIHYDRATE
  46. NAPROXEN [Concomitant]
     Active Substance: NAPROXEN
  47. TRAMADOL [Concomitant]
     Active Substance: TRAMADOL
  48. RABEPRAZOLE SODIUM [Concomitant]
     Active Substance: RABEPRAZOLE SODIUM
  49. PHENERGAN [Concomitant]
     Active Substance: PROMETHAZINE HYDROCHLORIDE
  50. LYRICA [Concomitant]
     Active Substance: PREGABALIN
  51. FOSFOMYCIN TROMETHAMINE [Concomitant]
     Active Substance: FOSFOMYCIN TROMETHAMINE
  52. OLOPATADINE HYDROCHLORIDE [Concomitant]
     Active Substance: OLOPATADINE HYDROCHLORIDE
  53. DOXYCYCLINE HYCLATE [Concomitant]
     Active Substance: DOXYCYCLINE HYCLATE
  54. CYCLOBENZAPRINE HYDROCHLORIDE [Concomitant]
     Active Substance: CYCLOBENZAPRINE HYDROCHLORIDE
  55. HYDROCHLOROTHIAZIDE\TRIAMTERENE [Concomitant]
     Active Substance: HYDROCHLOROTHIAZIDE\TRIAMTERENE
  56. CRANBERRY [Concomitant]
     Active Substance: CRANBERRY
  57. PANTOPRAZOLE SODIUM [Concomitant]
     Active Substance: PANTOPRAZOLE SODIUM
  58. DIPHENHYDRAMINE HYDROCHLORIDE [Concomitant]
     Active Substance: DIPHENHYDRAMINE HYDROCHLORIDE
  59. VITAMIN B [Concomitant]
     Active Substance: VITAMIN B
  60. ONDANSETRON [Concomitant]
     Active Substance: ONDANSETRON
  61. ASPIRIN [Concomitant]
     Active Substance: ASPIRIN

REACTIONS (21)
  - Respiratory tract infection [Not Recovered/Not Resolved]
  - Infection [Unknown]
  - COVID-19 [Unknown]
  - Rosacea [Recovered/Resolved]
  - Nasopharyngitis [Not Recovered/Not Resolved]
  - Eye infection [Unknown]
  - Product dose omission issue [Unknown]
  - Inappropriate schedule of product administration [Unknown]
  - Viral infection [Unknown]
  - Herpes zoster [Unknown]
  - Sinusitis [Unknown]
  - Upper respiratory tract infection [Unknown]
  - Infusion site bruising [Unknown]
  - Contusion [Unknown]
  - Infusion site pruritus [Unknown]
  - Vomiting [Unknown]
  - Pyrexia [Unknown]
  - Nausea [Unknown]
  - Pruritus [Unknown]
  - Headache [Unknown]
  - Infusion site haemorrhage [Unknown]

NARRATIVE: CASE EVENT DATE: 20201101
